FAERS Safety Report 8847922 (Version 4)
Quarter: 2013Q4

REPORT INFORMATION
  Report Type: Spontaneous
  Country: US (occurrence: US)
  Receive Date: 20121018
  Receipt Date: 20131028
  Transmission Date: 20140711
  Serious: Yes (Hospitalization, Disabling, Other)
  Sender: FDA-Public Use
  Company Number: US-009507513-1210USA007662

PATIENT
  Sex: Female
  Weight: 82 kg

DRUGS (6)
  1. FOSAMAX [Suspect]
     Indication: OSTEOPOROSIS
     Dosage: UNK UNK, QD
     Route: 048
     Dates: start: 19980721
  2. FOSAMAX [Suspect]
     Dosage: 70 MG, QW
     Route: 048
     Dates: start: 20010710, end: 20040629
  3. FOSAMAX [Suspect]
     Dosage: 70 MG, QW
     Route: 048
     Dates: start: 20050104, end: 20060713
  4. FOSAMAX PLUS D [Suspect]
     Indication: OSTEOPOROSIS
     Dosage: 70/2800
     Route: 048
     Dates: start: 20070228, end: 20080319
  5. ALENDRONATE SODIUM [Suspect]
     Indication: OSTEOPOROSIS
     Dosage: 70 MG, UNK
     Route: 048
     Dates: start: 20080322
  6. ACTONEL [Concomitant]
     Indication: OSTEOPOROSIS
     Dosage: 35 MG, UNK
     Route: 048
     Dates: start: 20060715

REACTIONS (23)
  - Femoral neck fracture [Recovering/Resolving]
  - Internal fixation of fracture [Unknown]
  - Femur fracture [Unknown]
  - Cholecystectomy [Unknown]
  - Mastectomy [Unknown]
  - Breast reconstruction [Unknown]
  - Plasma cell myeloma [Unknown]
  - Facial bones fracture [Not Recovered/Not Resolved]
  - Hypercholesterolaemia [Unknown]
  - Osteopenia [Unknown]
  - Sensation of foreign body [Unknown]
  - Ageusia [Unknown]
  - Excessive granulation tissue [Unknown]
  - Depression [Unknown]
  - Hot flush [Unknown]
  - Nasal operation [Unknown]
  - Essential tremor [Unknown]
  - Blood disorder [Unknown]
  - Abdominal hernia [Unknown]
  - Protein urine present [Unknown]
  - Spinal disorder [Unknown]
  - Haemangioma of bone [Unknown]
  - Plasmacytosis [Unknown]
